FAERS Safety Report 8371870-X (Version None)
Quarter: 2012Q2

REPORT INFORMATION
  Report Type: 
  Country: None (occurrence: None)
  Receive Date: 20120518
  Receipt Date: 20120131
  Transmission Date: 20120825
  Serious: Yes (Disabling, Other)
  Sender: FDA-Public Use
  Company Number: US-ROCHE-798482

PATIENT
  Weight: 92.8 kg

DRUGS (5)
  1. VELCADE [Suspect]
     Indication: PRODUCT USED FOR UNKNOWN INDICATION
     Route: 050
  2. OFLOXACIN [Concomitant]
     Route: 047
  3. LIDOCAINE [Concomitant]
     Route: 047
  4. PIPEROCAINE [Concomitant]
     Route: 047
  5. POVIDONE IODINE [Concomitant]
     Dosage: DRUG: POVIDONE IODINE 5% IN BSS

REACTIONS (8)
  - BLINDNESS [None]
  - INTRAOCULAR PRESSURE INCREASED [None]
  - BLINDNESS UNILATERAL [None]
  - EYE INFLAMMATION [None]
  - EYE PAIN [None]
  - MEDICATION ERROR [None]
  - VISUAL IMPAIRMENT [None]
  - PHOTOPHOBIA [None]
